FAERS Safety Report 9476230 (Version 2)
Quarter: 2013Q4

REPORT INFORMATION
  Report Type: Report from Study
  Country: US (occurrence: US)
  Receive Date: 20130826
  Receipt Date: 20131017
  Transmission Date: 20140711
  Serious: Yes (Hospitalization)
  Sender: FDA-Public Use
  Company Number: US-SANOFI-AVENTIS-2013SA083891

PATIENT
  Age: 56 Year
  Sex: Male
  Weight: 127 kg

DRUGS (13)
  1. AUBAGIO [Suspect]
     Indication: MULTIPLE SCLEROSIS
     Route: 048
     Dates: start: 20130221
  2. KEFLEX [Concomitant]
     Indication: CELLULITIS
     Dosage: TAKE 1 CAPSULE (500 MG TOTAL) BY MOUTH 3 TIMES A DAY.
     Dates: start: 20130712
  3. VIBRAMYCIN /NET/ [Concomitant]
     Indication: CELLULITIS
     Dosage: TAKE 1 CAPSULE (100 MG TOTAL) BY MOUTH 2 TIMES A DAY.
     Dates: start: 20130712
  4. LIORESAL [Concomitant]
     Dosage: TAKE 10 MG BY MOUTH DAILY. 2 TABS NIGHTLY
  5. PROZAC [Concomitant]
     Route: 065
  6. GLUCOPHAGE [Concomitant]
     Dosage: TAKE 500 MG BY MOUTH 2 TIMES A DAY.
  7. NIACIN [Concomitant]
     Dosage: TAKE 500 MG BY MOUTH QHSWM
  8. OMEGA 3 [Concomitant]
     Dosage: TAKE 1,000 MG BY MOUTH.
  9. DESYREL [Concomitant]
  10. PRINIVIL [Concomitant]
     Dosage: TAKE 2 TABLETS (20 MG TOTAL) BY MOUTH DAILY
  11. NIZORAL [Concomitant]
     Indication: CELLULITIS
     Dates: start: 20130712
  12. NIZORAL [Concomitant]
     Indication: SKIN INFECTION
     Dates: start: 20130712
  13. ZESTRIL [Concomitant]
     Route: 048

REACTIONS (8)
  - Pancreatitis [Recovered/Resolved]
  - Cellulitis [Recovered/Resolved]
  - Pyrexia [Recovered/Resolved]
  - Erythema [Recovered/Resolved]
  - Pain in extremity [Recovered/Resolved]
  - Muscular weakness [Recovered/Resolved]
  - Fatigue [Recovered/Resolved]
  - Skin fissures [Unknown]
